FAERS Safety Report 6254273-3 (Version None)
Quarter: 2009Q3

REPORT INFORMATION
  Report Type: 
  Country: None (occurrence: None)
  Receive Date: 20090702
  Receipt Date: 20090626
  Transmission Date: 20100115
  Serious: Yes (Life-Threatening)
  Sender: FDA-Public Use
  Company Number: GB-BAYER-200924530GPV

PATIENT
  Age: 64 Year
  Sex: Male

DRUGS (1)
  1. NAPROXEN [Suspect]
     Indication: MUSCULOSKELETAL STIFFNESS
     Route: 048
     Dates: start: 20090421, end: 20090501

REACTIONS (1)
  - ACUTE LEFT VENTRICULAR FAILURE [None]
